FAERS Safety Report 6981836-X (Version None)
Quarter: 2010Q3

REPORT INFORMATION
  Report Type: 
  Country: None (occurrence: None)
  Receive Date: 20100914
  Receipt Date: 20091125
  Transmission Date: 20110219
  Serious: No
  Sender: FDA-Public Use
  Company Number: US-PFIZER INC-2009272840

PATIENT
  Sex: Female

DRUGS (3)
  1. LYRICA [Suspect]
     Indication: FIBROMYALGIA
     Dosage: 150 MG, 2X/DAY
  2. LEXAPRO [Concomitant]
     Dosage: UNK
  3. AVAPRO [Concomitant]
     Dosage: UNK

REACTIONS (2)
  - AMNESIA [None]
  - DRUG INEFFECTIVE [None]
